FAERS Safety Report 5771298-2 (Version None)
Quarter: 2008Q1

REPORT INFORMATION
  Report Type: 
  Country: None (occurrence: None)
  Receive Date: 20080331
  Receipt Date: 20080331
  Transmission Date: 20080703
  Serious: No
  Sender: FDA-Public Use
  Company Number: None

PATIENT
  Age: 47 Year
  Sex: Female
  Weight: 72.5755 kg

DRUGS (1)
  1. NITROUS OXIDE UNKNOWN; TITRATED TO 30% UNKNOWN [Suspect]
     Indication: TOOTH EXTRACTION
     Dosage: 30% 10-15 MIN. INHAL
     Route: 055

REACTIONS (11)
  - ANXIETY [None]
  - ASTHENIA [None]
  - BLOOD PRESSURE DECREASED [None]
  - BLOOD PRESSURE INCREASED [None]
  - FATIGUE [None]
  - FEELING COLD [None]
  - GAIT DISTURBANCE [None]
  - MEMORY IMPAIRMENT [None]
  - PROCEDURAL COMPLICATION [None]
  - SOMNOLENCE [None]
  - TREMOR [None]
